FAERS Safety Report 19718396 (Version 5)
Quarter: 2021Q3

REPORT INFORMATION
  Report Type: Report from Study
  Country: BR (occurrence: BR)
  Receive Date: 20210818
  Receipt Date: 20210930
  Transmission Date: 20211014
  Serious: Yes (Hospitalization)
  Sender: FDA-Public Use
  Company Number: BR-EISAI MEDICAL RESEARCH-EC-2021-098043

PATIENT
  Age: 66 Year
  Sex: Male
  Weight: 70.8 kg

DRUGS (6)
  1. TANSULOSINA [Concomitant]
     Dates: start: 201501
  2. LEVOTHYROXINE SODIUM. [Concomitant]
     Active Substance: LEVOTHYROXINE SODIUM
     Dates: start: 202009
  3. DIPYRONE [Concomitant]
     Active Substance: DIPYRONE
     Dates: start: 20210708
  4. BUPRENORPHINE. [Concomitant]
     Active Substance: BUPRENORPHINE
     Dates: start: 20210713
  5. LENVATINIB [Suspect]
     Active Substance: LENVATINIB
     Indication: SQUAMOUS CELL CARCINOMA OF HEAD AND NECK
     Route: 048
     Dates: start: 20210714, end: 20210803
  6. PEMBROLIZUMAB. [Suspect]
     Active Substance: PEMBROLIZUMAB
     Indication: SQUAMOUS CELL CARCINOMA OF HEAD AND NECK
     Route: 041
     Dates: start: 20210714, end: 20210714

REACTIONS (3)
  - Bronchopleural fistula [Recovering/Resolving]
  - Pneumonitis [Recovered/Resolved]
  - Pneumonia [Recovered/Resolved]

NARRATIVE: CASE EVENT DATE: 20210729
